FAERS Safety Report 5318803-8 (Version None)
Quarter: 2007Q2

REPORT INFORMATION
  Report Type: 
  Country: None (occurrence: None)
  Receive Date: 20070504
  Receipt Date: 20070504
  Transmission Date: 20071010
  Serious: Yes (Other)
  Sender: FDA-Public Use
  Company Number: None

PATIENT
  Sex: Female
  Weight: 60.3284 kg

DRUGS (4)
  1. ZELNORM [Suspect]
     Indication: GASTRIC DISORDER
     Dosage: 1 TABLET 2XDAILY PO
     Route: 048
     Dates: start: 20061118, end: 20061118
  2. ZELNORM [Suspect]
     Indication: GASTRITIS
     Dosage: 1 TABLET 2XDAILY PO
     Route: 048
     Dates: start: 20061118, end: 20061118
  3. PROTONIX [Concomitant]
  4. TOPROL-XL [Concomitant]

REACTIONS (6)
  - BLOOD PRESSURE INCREASED [None]
  - DIARRHOEA [None]
  - DRUG HYPERSENSITIVITY [None]
  - DYSPNOEA [None]
  - PHARMACEUTICAL PRODUCT COMPLAINT [None]
  - RASH [None]
